FAERS Safety Report 5149511-4 (Version None)
Quarter: 2006Q4

REPORT INFORMATION
  Report Type: 
  Country: None (occurrence: None)
  Receive Date: 20061113
  Receipt Date: 20060301
  Transmission Date: 20070319
  Serious: No
  Sender: FDA-Public Use
  Company Number: US-GLAXOSMITHKLINE-A0595720A

PATIENT
  Age: 63 Year
  Sex: Female
  Weight: 86 kg

DRUGS (7)
  1. COREG [Suspect]
     Indication: HYPERTENSION
     Route: 048
     Dates: start: 20051101
  2. ZOLOFT [Concomitant]
     Indication: DEPRESSION
     Dosage: 50MG PER DAY
     Route: 048
     Dates: start: 20051027
  3. FLOVENT [Concomitant]
     Indication: ASTHMA
     Route: 055
  4. PROVENTIL [Concomitant]
     Indication: ASTHMA
     Route: 055
  5. FLEXERIL [Concomitant]
     Dosage: 5MG PER DAY
     Route: 048
  6. ASPIRIN [Concomitant]
     Route: 048
  7. CALCIUM CARBONATE [Concomitant]
     Dosage: 1TAB TWICE PER DAY
     Route: 048

REACTIONS (1)
  - ALOPECIA [None]
